FAERS Safety Report 21765332 (Version 2)
Quarter: 2023Q1

REPORT INFORMATION
  Report Type: Spontaneous
  Country: GB (occurrence: GB)
  Receive Date: 20221222
  Receipt Date: 20230110
  Transmission Date: 20230418
  Serious: Yes (Other)
  Sender: FDA-Public Use
  Company Number: GB-MYLANLABS-2022M1136862

PATIENT
  Age: 57 Year
  Sex: Female

DRUGS (1)
  1. CLOZARIL [Suspect]
     Active Substance: CLOZAPINE
     Indication: Product used for unknown indication
     Dosage: UNK
     Route: 048
     Dates: start: 20050415

REACTIONS (3)
  - Thrombocytopenia [Not Recovered/Not Resolved]
  - Pleural effusion [Unknown]
  - Arthropathy [Unknown]

NARRATIVE: CASE EVENT DATE: 20100101
